FAERS Safety Report 14529315 (Version 1)
Quarter: 2018Q1

REPORT INFORMATION
  Report Type: Spontaneous
  Country: US (occurrence: US)
  Receive Date: 20180214
  Receipt Date: 20180214
  Transmission Date: 20180509
  Serious: No
  Sender: FDA-Public Use
  Company Number: US-PFIZER INC-2018061247

PATIENT
  Age: 69 Year
  Sex: Female

DRUGS (1)
  1. ZOLOFT [Suspect]
     Active Substance: SERTRALINE HYDROCHLORIDE
     Indication: IRRITABLE BOWEL SYNDROME
     Dosage: UNK
     Dates: end: 2017

REACTIONS (2)
  - Abnormal behaviour [Unknown]
  - Product use in unapproved indication [Unknown]
